FAERS Safety Report 4843510-5 (Version None)
Quarter: 2005Q4

REPORT INFORMATION
  Report Type: 
  Country: None (occurrence: None)
  Receive Date: 20051202
  Receipt Date: 20051125
  Transmission Date: 20060501
  Serious: Yes (Death, Other)
  Sender: FDA-Public Use
  Company Number: PHBS2005US17422

PATIENT
  Age: 25 Year
  Sex: Female

DRUGS (3)
  1. CLOZAPINE [Suspect]
     Indication: SCHIZOPHRENIA
     Dosage: 175 MG/D
     Route: 065
  2. ATENOLOL [Concomitant]
  3. IPRATROPIUM BROMIDE [Concomitant]

REACTIONS (4)
  - BODY MASS INDEX INCREASED [None]
  - DIABETES MELLITUS [None]
  - MYOCARDIAL INFARCTION [None]
  - WEIGHT INCREASED [None]
